FAERS Safety Report 13857764 (Version 7)
Quarter: 2017Q4

REPORT INFORMATION
  Report Type: Spontaneous
  Country: US (occurrence: US)
  Receive Date: 20170811
  Receipt Date: 20171129
  Transmission Date: 20180320
  Serious: Yes (Other)
  Sender: FDA-Public Use
  Company Number: PHEH2017US025316

PATIENT
  Sex: Female

DRUGS (2)
  1. ZOFRAN [Suspect]
     Active Substance: ONDANSETRON HYDROCHLORIDE
     Indication: PRODUCT USED FOR UNKNOWN INDICATION
     Route: 048
  2. ONDANSETRONE RANBAXY [Suspect]
     Active Substance: ONDANSETRON HYDROCHLORIDE
     Indication: VOMITING IN PREGNANCY
     Dosage: 1 DF, Q6H, PRN
     Route: 065
     Dates: start: 20141202

REACTIONS (13)
  - Anxiety [Unknown]
  - Maternal exposure during pregnancy [Unknown]
  - Product use issue [Unknown]
  - Hypothyroidism [Unknown]
  - Injury [Unknown]
  - Depression [Unknown]
  - Breast mass [Unknown]
  - Urinary tract infection [Unknown]
  - Ovarian cyst [Unknown]
  - Constipation [Unknown]
  - Post-traumatic stress disorder [Unknown]
  - Gestational diabetes [Unknown]
  - Dysuria [Unknown]
